FAERS Safety Report 5841972-8 (Version None)
Quarter: 2008Q3

REPORT INFORMATION
  Report Type: 
  Country: None (occurrence: None)
  Receive Date: 20080812
  Receipt Date: 20050309
  Transmission Date: 20090109
  Serious: Yes (Hospitalization)
  Sender: FDA-Public Use
  Company Number: US-MERCK-0409USA00119B1

PATIENT
  Sex: Female
  Weight: 3 kg

DRUGS (5)
  1. SINGULAIR [Suspect]
     Indication: ASTHMA
     Route: 064
     Dates: end: 20030901
  2. SINGULAIR [Suspect]
     Route: 064
     Dates: start: 20040330
  3. SINGULAIR [Suspect]
     Indication: HYPERSENSITIVITY
     Route: 064
     Dates: end: 20030901
  4. SINGULAIR [Suspect]
     Route: 064
     Dates: start: 20040330
  5. PULMICORT-100 [Concomitant]
     Route: 064

REACTIONS (2)
  - COLLAPSE OF LUNG [None]
  - NEONATAL ASPIRATION [None]
